FAERS Safety Report 17350301 (Version 3)
Quarter: 2020Q2

REPORT INFORMATION
  Report Type: Report from Study
  Country: None (occurrence: CA)
  Receive Date: 20200130
  Receipt Date: 20200428
  Transmission Date: 20200713
  Serious: Yes (Hospitalization, Other)
  Sender: FDA-Public Use
  Company Number: CA-ABBVIE-20K-028-3254057-00

PATIENT
  Age: 68 Year
  Sex: Male
  Weight: 88.9 kg

DRUGS (1)
  1. DUODOPA [Suspect]
     Active Substance: CARBIDOPA\LEVODOPA
     Indication: PARKINSON^S DISEASE
     Dosage: DUODOPA-LEVODOPA20MG/ML,CARBIDOPAMONOHYDRATE5MG/ML
     Route: 050
     Dates: start: 20150714

REACTIONS (6)
  - Pain in extremity [Unknown]
  - Tachyarrhythmia [Unknown]
  - Coronary artery disease [Unknown]
  - Angina unstable [Unknown]
  - Coronary artery occlusion [Recovered/Resolved]
  - Pain in jaw [Unknown]

NARRATIVE: CASE EVENT DATE: 20200127
